FAERS Safety Report 6157880-1 (Version None)
Quarter: 2009Q2

REPORT INFORMATION
  Report Type: 
  Country: None (occurrence: None)
  Receive Date: 20090414
  Receipt Date: 20090403
  Transmission Date: 20091009
  Serious: Yes (Congenital Anomaly)
  Sender: FDA-Public Use
  Company Number: ACO_00529_2009

PATIENT

DRUGS (1)
  1. TIZANIDINE HYDROCHLORIDE [Suspect]
     Dosage: (4 MG TRANSPLACENTAL)
     Route: 064

REACTIONS (2)
  - MATERNAL DRUGS AFFECTING FOETUS [None]
  - PERONEAL MUSCULAR ATROPHY [None]
